FAERS Safety Report 4358216-9 (Version None)
Quarter: 2004Q2

REPORT INFORMATION
  Report Type: 
  Country: None (occurrence: None)
  Receive Date: 20040511
  Receipt Date: 20040427
  Transmission Date: 20050107
  Serious: Yes (Hospitalization, Other)
  Sender: FDA-Public Use
  Company Number: 2004013581

PATIENT
  Sex: Male

DRUGS (1)
  1. NITROSTAT [Suspect]
     Indication: ILL-DEFINED DISORDER
     Dosage: SUBLINGUAL
     Route: 060

REACTIONS (2)
  - MYOCARDIAL INFARCTION [None]
  - PHARMACEUTICAL PRODUCT COMPLAINT [None]
